FAERS Safety Report 7350553-9 (Version None)
Quarter: 2011Q1

REPORT INFORMATION
  Report Type: 
  Country: None (occurrence: None)
  Receive Date: 20110222
  Receipt Date: 20101207
  Transmission Date: 20110831
  Serious: No
  Sender: FDA-Public Use
  Company Number: 023258

PATIENT
  Sex: Male
  Weight: 69.4 kg

DRUGS (6)
  1. COUMADIN [Concomitant]
  2. ALTACE [Concomitant]
  3. TOPIRAMATE [Concomitant]
  4. TEGRETOL [Concomitant]
  5. LACOSAMIDE [Suspect]
     Indication: CONVULSION
     Dosage: (100 MG ORAL)
     Route: 048
     Dates: start: 20101111
  6. HYDROCHLOROTHIAZIDE [Concomitant]

REACTIONS (5)
  - MYALGIA [None]
  - DECREASED APPETITE [None]
  - ABDOMINAL DISTENSION [None]
  - SOMNOLENCE [None]
  - LETHARGY [None]
